FAERS Safety Report 17140940 (Version 1)
Quarter: 2019Q4

REPORT INFORMATION
  Report Type: Spontaneous
  Country: DE (occurrence: DE)
  Receive Date: 20191211
  Receipt Date: 20191211
  Transmission Date: 20200122
  Serious: Yes (Other)
  Sender: FDA-Public Use
  Company Number: DE-PFIZER INC-2019528381

PATIENT
  Age: 1 Day
  Sex: Female
  Weight: 2.92 kg

DRUGS (4)
  1. SERTRALINE HCL [Suspect]
     Active Substance: SERTRALINE HYDROCHLORIDE
     Indication: DEPRESSION
     Dosage: 150 MG, DAILY
     Route: 064
     Dates: start: 20180205, end: 2018
  2. QUETIAPIN [Suspect]
     Active Substance: QUETIAPINE
     Indication: BIPOLAR DISORDER
     Dosage: 200 MG, 1X/DAY
     Route: 064
     Dates: start: 20180205, end: 2018
  3. QUETIAPIN [Suspect]
     Active Substance: QUETIAPINE
     Dosage: RETARD
     Route: 064
     Dates: start: 2018, end: 20191028
  4. SERTRALINE HCL [Suspect]
     Active Substance: SERTRALINE HYDROCHLORIDE
     Dosage: 75 MG, DAILY
     Route: 064
     Dates: start: 2018, end: 20181028

REACTIONS (2)
  - Apnoea [Unknown]
  - Maternal exposure during pregnancy [Unknown]

NARRATIVE: CASE EVENT DATE: 20181028
